FAERS Safety Report 8281167-4 (Version None)
Quarter: 2012Q2

REPORT INFORMATION
  Report Type: 
  Country: None (occurrence: None)
  Receive Date: 20120413
  Receipt Date: 20120402
  Transmission Date: 20120825
  Serious: No
  Sender: FDA-Public Use
  Company Number: US-BIOGENIDEC-2012BI007691

PATIENT
  Sex: Female

DRUGS (1)
  1. TYSABRI [Suspect]
     Indication: MULTIPLE SCLEROSIS
     Route: 042
     Dates: start: 20061212, end: 20070512

REACTIONS (6)
  - MUSCLE SPASMS [None]
  - VISUAL ACUITY REDUCED [None]
  - FATIGUE [None]
  - MULTIPLE SCLEROSIS [None]
  - GENERAL PHYSICAL HEALTH DETERIORATION [None]
  - MIGRAINE [None]
